FAERS Safety Report 21232425 (Version 1)
Quarter: 2022Q3

REPORT INFORMATION
  Report Type: Spontaneous
  Country: US (occurrence: None)
  Receive Date: 20220818
  Receipt Date: 20220818
  Transmission Date: 20221027
  Serious: No
  Sender: FDA-Public Use
  Company Number: None

PATIENT
  Sex: Male

DRUGS (1)
  1. CAPECITABINE [Suspect]
     Active Substance: CAPECITABINE
     Dosage: 1500MG BID ORAL
     Route: 048
     Dates: start: 202206

REACTIONS (3)
  - Hypersomnia [None]
  - Fatigue [None]
  - Paraesthesia [None]
